FAERS Safety Report 4984316-6 (Version None)
Quarter: 2006Q2

REPORT INFORMATION
  Report Type: 
  Country: None (occurrence: None)
  Receive Date: 20060420
  Receipt Date: 20060410
  Transmission Date: 20061013
  Serious: Yes (Other)
  Sender: FDA-Public Use
  Company Number: DE-2005-027520

PATIENT
  Age: 25 Year
  Sex: Female

DRUGS (1)
  1. YASMIN [Suspect]
     Indication: ORAL CONTRACEPTION
     Dosage: 21D/28D, ORAL
     Route: 048
     Dates: start: 20051101, end: 20051213

REACTIONS (3)
  - ANGIONEUROTIC OEDEMA [None]
  - LARYNGITIS [None]
  - PHARYNGEAL OEDEMA [None]
